FAERS Safety Report 6879252-4 (Version None)
Quarter: 2010Q3

REPORT INFORMATION
  Report Type: 
  Country: None (occurrence: None)
  Receive Date: 20100728
  Receipt Date: 20091027
  Transmission Date: 20110219
  Serious: No
  Sender: FDA-Public Use
  Company Number: US-ABBOTT-09P-163-0606118-00

PATIENT
  Sex: Female
  Weight: 57.658 kg

DRUGS (3)
  1. SYNTHROID [Suspect]
     Indication: AUTOIMMUNE THYROIDITIS
     Dosage: .175 5 DAYS A WEEK THEN 1/2 A TAB 2 DAYS A WEEK
     Dates: start: 19910101, end: 20091019
  2. SYNTHROID [Suspect]
     Dates: start: 20091019
  3. ESTRASE CREME [Concomitant]
     Indication: PRODUCT USED FOR UNKNOWN INDICATION

REACTIONS (4)
  - INSOMNIA [None]
  - MUSCULAR WEAKNESS [None]
  - SWELLING [None]
  - TREMOR [None]
